FAERS Safety Report 6625579-0 (Version None)
Quarter: 2010Q1

REPORT INFORMATION
  Report Type: 
  Country: None (occurrence: None)
  Receive Date: 20100223
  Receipt Date: 20091109
  Transmission Date: 20100710
  Serious: No
  Sender: FDA-Public Use
  Company Number: 8054474

PATIENT
  Sex: Female

DRUGS (1)
  1. CERTOLIZUMAB PEGOL                        (UCB, INC) [Suspect]
     Dosage: 400 MG ONCE MONTHLY SUBCUTANEOUS
     Route: 058
     Dates: start: 20090121

REACTIONS (5)
  - DIARRHOEA [None]
  - FATIGUE [None]
  - FREQUENT BOWEL MOVEMENTS [None]
  - HAEMATOCHEZIA [None]
  - MALAISE [None]
